FAERS Safety Report 18402749 (Version 1)
Quarter: 2020Q4

REPORT INFORMATION
  Report Type: Spontaneous
  Country: US (occurrence: US)
  Receive Date: 20201020
  Receipt Date: 20201020
  Transmission Date: 20210114
  Serious: No
  Sender: FDA-Public Use
  Company Number: US-ASTRAZENECA-2020SF26070

PATIENT
  Sex: Male
  Weight: 113.4 kg

DRUGS (2)
  1. BYDUREON [Suspect]
     Active Substance: EXENATIDE
     Indication: DIABETES MELLITUS
     Route: 058
  2. INSULIN [Concomitant]
     Active Substance: INSULIN NOS

REACTIONS (5)
  - Injection site injury [Unknown]
  - Injection site haemorrhage [Unknown]
  - Device issue [Unknown]
  - Wrong technique in product usage process [Unknown]
  - Injection site pain [Unknown]
